FAERS Safety Report 24752929 (Version 1)
Quarter: 2024Q4

REPORT INFORMATION
  Report Type: Spontaneous
  Country: CN (occurrence: CN)
  Receive Date: 20241219
  Receipt Date: 20241219
  Transmission Date: 20250114
  Serious: Yes (Hospitalization)
  Sender: NOVARTIS
  Company Number: CN-002147023-NVSC2024CN238496

PATIENT
  Age: 59 Year
  Sex: Female
  Weight: 60 kg

DRUGS (3)
  1. DABRAFENIB [Suspect]
     Active Substance: DABRAFENIB
     Indication: Chemotherapy
     Dosage: 150 MG, BID
     Route: 048
     Dates: start: 20241126, end: 20241209
  2. CETUXIMAB [Suspect]
     Active Substance: CETUXIMAB
     Indication: Chemotherapy
     Dosage: 700 MG, QD (0.7 G)
     Route: 041
     Dates: start: 20241126, end: 20241126
  3. IRINOTECAN HYDROCHLORIDE [Suspect]
     Active Substance: IRINOTECAN HYDROCHLORIDE
     Indication: Chemotherapy
     Dosage: 240 MG, QD
     Route: 041
     Dates: start: 20241126, end: 20241126

REACTIONS (1)
  - Myelosuppression [Recovering/Resolving]

NARRATIVE: CASE EVENT DATE: 20241209
